FAERS Safety Report 13659495 (Version 1)
Quarter: 2017Q2

REPORT INFORMATION
  Report Type: Spontaneous
  Country: US (occurrence: US)
  Receive Date: 20170616
  Receipt Date: 20170616
  Transmission Date: 20170830
  Serious: Yes (Hospitalization)
  Sender: FDA-Public Use
  Company Number: None

PATIENT
  Age: 81 Year
  Sex: Female
  Weight: 86.9 kg

DRUGS (9)
  1. GLUCOPHAGE [Concomitant]
     Active Substance: METFORMIN HYDROCHLORIDE
  2. KLOR-CON [Suspect]
     Active Substance: POTASSIUM CHLORIDE
     Indication: HYPERTENSION
     Dosage: DATES OF USE - CHRONIC
     Route: 048
  3. ALLEGRA [Concomitant]
     Active Substance: FEXOFENADINE HYDROCHLORIDE
  4. SEPTRA DS [Suspect]
     Active Substance: SULFAMETHOXAZOLE\TRIMETHOPRIM
     Indication: URINARY TRACT INFECTION
     Dosage: DOSE - 800/160MG?DATES OF USE - RECENT
     Route: 048
  5. ZOCOR [Concomitant]
     Active Substance: SIMVASTATIN
  6. ASCORBIC ACID. [Concomitant]
     Active Substance: ASCORBIC ACID
  7. WELLBUTRIN XL [Concomitant]
     Active Substance: BUPROPION HYDROCHLORIDE
  8. CULTURELLE [Concomitant]
     Active Substance: LACTOBACILLUS RHAMNOSUS
  9. SPIRONOLACTONE. [Suspect]
     Active Substance: SPIRONOLACTONE

REACTIONS (6)
  - Hyperkalaemia [None]
  - Acute kidney injury [None]
  - Cardiac failure congestive [None]
  - Hypophagia [None]
  - Acute myocardial infarction [None]
  - Asthenia [None]

NARRATIVE: CASE EVENT DATE: 20170314
